FAERS Safety Report 16577450 (Version 1)
Quarter: 2019Q3

REPORT INFORMATION
  Report Type: Spontaneous
  Country: DE (occurrence: DE)
  Receive Date: 20190716
  Receipt Date: 20190716
  Transmission Date: 20191004
  Serious: Yes (Hospitalization)
  Sender: FDA-Public Use
  Company Number: DE-TEVA-2019-DE-1077214

PATIENT
  Age: 68 Year
  Sex: Female

DRUGS (15)
  1. DIMETINDEN [Concomitant]
     Active Substance: DIMETHINDENE
     Dosage: 4 MG, 1-0-0-0
  2. ENOXAPARIN [Concomitant]
     Active Substance: ENOXAPARIN
     Dosage: 0.7 ML, 1-0-1-0
  3. ATENOLOL. [Concomitant]
     Active Substance: ATENOLOL
     Dosage: 50 MG, 1-0-1-0
  4. CALCIUM [Concomitant]
     Active Substance: CALCIUM
     Dosage: 500 MG, 1-0-0-0, EFFERVESCENT TABLETS
  5. OXYCODON [Concomitant]
     Active Substance: OXYCODONE
     Dosage: 10 MG, 1-0-1-0
  6. TORASEMID [Concomitant]
     Active Substance: TORSEMIDE
     Dosage: 10 MG, 1-0-0-0
  7. ONDANSETRON [Concomitant]
     Active Substance: ONDANSETRON
     Dosage: 8 MG, NEED; UP TO 4 X/D
  8. PANTOPRAZOL [Concomitant]
     Active Substance: PANTOPRAZOLE SODIUM
     Dosage: 40 MG, 1-0-0-0
  9. MACROGOL/NATRIUMCHLORID/NATRIUMHYDROGENCARBONAT/KALIUMCHLORID [Concomitant]
     Dosage: NK MG, DEMAND
  10. METOCLOPRAMID [Concomitant]
     Active Substance: METOCLOPRAMIDE
     Dosage: 10 MG, UP TO 4X/D
  11. COLECALCIFEROL [Concomitant]
     Active Substance: CHOLECALCIFEROL
     Dosage: 1000 IE, 1-0-0-0
  12. METAMIZOL [Concomitant]
     Active Substance: METAMIZOLE SODIUM
     Dosage: NK MG, 40-40-40-40, DROPS
  13. METOPROLOL. [Concomitant]
     Active Substance: METOPROLOL
     Dosage: 10 MG, 1-1-1-0
  14. GEMCITABINE. [Suspect]
     Active Substance: GEMCITABINE
     Dosage: NK MG, LAST SEEN ON JAN 16, 2018
  15. LEVOTHYROXIN-NATRIUM [Concomitant]
     Active Substance: LEVOTHYROXINE SODIUM
     Dosage: 50 MG, 0.5-0-0-0

REACTIONS (4)
  - Decreased appetite [Unknown]
  - General physical health deterioration [Unknown]
  - Asthenia [Unknown]
  - Abdominal pain [Unknown]
